FAERS Safety Report 6771133-X (Version None)
Quarter: 2010Q2

REPORT INFORMATION
  Report Type: 
  Country: None (occurrence: None)
  Receive Date: 20100614
  Receipt Date: 20100614
  Transmission Date: 20101027
  Serious: Yes (Life-Threatening, Hospitalization)
  Sender: FDA-Public Use
  Company Number: None

PATIENT
  Age: 78 Year
  Sex: Male
  Weight: 68.0396 kg

DRUGS (2)
  1. SEMIVASTATIN 80 MG [Suspect]
     Indication: BLOOD CHOLESTEROL INCREASED
     Dosage: 80 MG 1 A DAY ; 40 MG - 10-15 YRS ; 80 MG - 2 YRS
  2. GEMFIBROZIL [Suspect]
     Indication: BLOOD TRIGLYCERIDES INCREASED
     Dosage: 600 MG 1 A DAY

REACTIONS (1)
  - RHABDOMYOLYSIS [None]
